FAERS Safety Report 24215071 (Version 1)
Quarter: 2024Q3

REPORT INFORMATION
  Report Type: Spontaneous
  Country: US (occurrence: US)
  Receive Date: 20240816
  Receipt Date: 20240816
  Transmission Date: 20241016
  Serious: No
  Sender: Haleon PLC
  Company Number: US-HALEON-2191898

PATIENT

DRUGS (2)
  1. VOLTAREN ARTHRITIS PAIN [Suspect]
     Active Substance: DICLOFENAC SODIUM
     Indication: Pain
  2. ALEVE [Concomitant]
     Active Substance: NAPROXEN SODIUM
     Indication: Pain

REACTIONS (2)
  - Joint swelling [Unknown]
  - Product use issue [Unknown]
